FAERS Safety Report 6044348-6 (Version None)
Quarter: 2009Q1

REPORT INFORMATION
  Report Type: 
  Country: None (occurrence: None)
  Receive Date: 20090120
  Receipt Date: 20090112
  Transmission Date: 20090719
  Serious: Yes (Other)
  Sender: FDA-Public Use
  Company Number: CA-JNJFOC-20081005381

PATIENT
  Sex: Female
  Weight: 55 kg

DRUGS (6)
  1. REMICADE [Suspect]
     Route: 042
  2. REMICADE [Suspect]
     Route: 042
  3. REMICADE [Suspect]
     Indication: PSORIATIC ARTHROPATHY
     Route: 042
  4. REMICADE [Suspect]
     Indication: RHEUMATOID ARTHRITIS
     Route: 042
  5. BENADRYL [Concomitant]
     Indication: PREMEDICATION
     Route: 048
  6. TYLENOL (CAPLET) [Concomitant]
     Indication: PREMEDICATION
     Route: 048

REACTIONS (7)
  - ERYTHEMA [None]
  - INFUSION RELATED REACTION [None]
  - LIVEDO RETICULARIS [None]
  - OEDEMA PERIPHERAL [None]
  - RASH MACULAR [None]
  - TRIGEMINAL NERVE DISORDER [None]
  - URTICARIA [None]
